FAERS Safety Report 24692471 (Version 2)
Quarter: 2025Q1

REPORT INFORMATION
  Report Type: Report from Study
  Country: FR (occurrence: FR)
  Receive Date: 20241203
  Receipt Date: 20250324
  Transmission Date: 20250409
  Serious: Yes (Hospitalization, Other)
  Sender: MYLAN
  Company Number: FR-SA-SAC20211110000921

PATIENT
  Age: 77 Year
  Sex: Male
  Weight: 73 kg

DRUGS (100)
  1. DEXAMETHASONE [Suspect]
     Active Substance: DEXAMETHASONE
     Indication: Plasma cell myeloma refractory
     Dosage: 40 MILLIGRAM, QW
     Dates: start: 20210906, end: 20211003
  2. DEXAMETHASONE [Suspect]
     Active Substance: DEXAMETHASONE
     Dosage: 40 MILLIGRAM, QW
     Dates: start: 20210906, end: 20211003
  3. DEXAMETHASONE [Suspect]
     Active Substance: DEXAMETHASONE
     Dosage: 40 MILLIGRAM, QW
     Route: 042
     Dates: start: 20210906, end: 20211003
  4. DEXAMETHASONE [Suspect]
     Active Substance: DEXAMETHASONE
     Dosage: 40 MILLIGRAM, QW
     Route: 042
     Dates: start: 20210906, end: 20211003
  5. DEXAMETHASONE [Suspect]
     Active Substance: DEXAMETHASONE
     Dosage: 80 MILLIGRAM, QW
     Dates: start: 20211004, end: 20211017
  6. DEXAMETHASONE [Suspect]
     Active Substance: DEXAMETHASONE
     Dosage: 80 MILLIGRAM, QW
     Dates: start: 20211004, end: 20211017
  7. DEXAMETHASONE [Suspect]
     Active Substance: DEXAMETHASONE
     Dosage: 80 MILLIGRAM, QW
     Route: 042
     Dates: start: 20211004, end: 20211017
  8. DEXAMETHASONE [Suspect]
     Active Substance: DEXAMETHASONE
     Dosage: 80 MILLIGRAM, QW
     Route: 042
     Dates: start: 20211004, end: 20211017
  9. ISATUXIMAB [Suspect]
     Active Substance: ISATUXIMAB
     Indication: Plasma cell myeloma refractory
     Dosage: 10 MILLIGRAM/KILOGRAM, QW
     Route: 042
     Dates: start: 20210906, end: 20211003
  10. ISATUXIMAB [Suspect]
     Active Substance: ISATUXIMAB
     Dosage: 10 MILLIGRAM/KILOGRAM, QW
     Dates: start: 20210906, end: 20211003
  11. ISATUXIMAB [Suspect]
     Active Substance: ISATUXIMAB
     Dosage: 10 MILLIGRAM/KILOGRAM, QW
     Dates: start: 20210906, end: 20211003
  12. ISATUXIMAB [Suspect]
     Active Substance: ISATUXIMAB
     Dosage: 10 MILLIGRAM/KILOGRAM, QW
     Route: 042
     Dates: start: 20210906, end: 20211003
  13. ISATUXIMAB [Suspect]
     Active Substance: ISATUXIMAB
     Dosage: 10 MILLIGRAM/KILOGRAM, BIWEEKLY (20 MG/KG, QW)
     Route: 042
     Dates: start: 20211004, end: 20211017
  14. ISATUXIMAB [Suspect]
     Active Substance: ISATUXIMAB
     Dosage: 10 MILLIGRAM/KILOGRAM, BIWEEKLY (20 MG/KG, QW)
     Dates: start: 20211004, end: 20211017
  15. ISATUXIMAB [Suspect]
     Active Substance: ISATUXIMAB
     Dosage: 10 MILLIGRAM/KILOGRAM, BIWEEKLY (20 MG/KG, QW)
     Dates: start: 20211004, end: 20211017
  16. ISATUXIMAB [Suspect]
     Active Substance: ISATUXIMAB
     Dosage: 10 MILLIGRAM/KILOGRAM, BIWEEKLY (20 MG/KG, QW)
     Route: 042
     Dates: start: 20211004, end: 20211017
  17. POMALIDOMIDE [Suspect]
     Active Substance: POMALIDOMIDE
     Indication: Plasma cell myeloma refractory
     Dosage: 3 MILLIGRAM, QD
     Dates: start: 20210906, end: 20210910
  18. POMALIDOMIDE [Suspect]
     Active Substance: POMALIDOMIDE
     Dosage: 3 MILLIGRAM, QD
     Dates: start: 20210906, end: 20210910
  19. POMALIDOMIDE [Suspect]
     Active Substance: POMALIDOMIDE
     Dosage: 3 MILLIGRAM, QD
     Route: 065
     Dates: start: 20210906, end: 20210910
  20. POMALIDOMIDE [Suspect]
     Active Substance: POMALIDOMIDE
     Dosage: 3 MILLIGRAM, QD
     Route: 065
     Dates: start: 20210906, end: 20210910
  21. POMALIDOMIDE [Suspect]
     Active Substance: POMALIDOMIDE
     Dosage: 2 MILLIGRAM, QD
     Dates: start: 20210913, end: 20210923
  22. POMALIDOMIDE [Suspect]
     Active Substance: POMALIDOMIDE
     Dosage: 2 MILLIGRAM, QD
     Dates: start: 20210913, end: 20210923
  23. POMALIDOMIDE [Suspect]
     Active Substance: POMALIDOMIDE
     Dosage: 2 MILLIGRAM, QD
     Route: 065
     Dates: start: 20210913, end: 20210923
  24. POMALIDOMIDE [Suspect]
     Active Substance: POMALIDOMIDE
     Dosage: 2 MILLIGRAM, QD
     Route: 065
     Dates: start: 20210913, end: 20210923
  25. POMALIDOMIDE [Suspect]
     Active Substance: POMALIDOMIDE
     Dosage: 2 MILLIGRAM, QD
     Dates: start: 20211004
  26. POMALIDOMIDE [Suspect]
     Active Substance: POMALIDOMIDE
     Dosage: 2 MILLIGRAM, QD
     Route: 065
     Dates: start: 20211004
  27. POMALIDOMIDE [Suspect]
     Active Substance: POMALIDOMIDE
     Dosage: 2 MILLIGRAM, QD
     Dates: start: 20211004
  28. POMALIDOMIDE [Suspect]
     Active Substance: POMALIDOMIDE
     Dosage: 2 MILLIGRAM, QD
     Route: 065
     Dates: start: 20211004
  29. CEFTRIAXONE [Concomitant]
     Active Substance: CEFTRIAXONE
     Indication: Fatigue
  30. CEFTRIAXONE [Concomitant]
     Active Substance: CEFTRIAXONE
     Route: 065
  31. CEFTRIAXONE [Concomitant]
     Active Substance: CEFTRIAXONE
     Route: 065
  32. CEFTRIAXONE [Concomitant]
     Active Substance: CEFTRIAXONE
  33. LOVENOX [Concomitant]
     Active Substance: ENOXAPARIN SODIUM
  34. LOVENOX [Concomitant]
     Active Substance: ENOXAPARIN SODIUM
     Route: 065
  35. LOVENOX [Concomitant]
     Active Substance: ENOXAPARIN SODIUM
     Route: 065
  36. LOVENOX [Concomitant]
     Active Substance: ENOXAPARIN SODIUM
  37. VALACYCLOVIR HYDROCHLORIDE [Concomitant]
     Active Substance: VALACYCLOVIR HYDROCHLORIDE
     Indication: Herpes virus infection
     Dosage: UNK UNK, QD
     Dates: start: 20200529, end: 20211021
  38. VALACYCLOVIR HYDROCHLORIDE [Concomitant]
     Active Substance: VALACYCLOVIR HYDROCHLORIDE
     Dosage: UNK UNK, QD
     Route: 065
     Dates: start: 20200529, end: 20211021
  39. VALACYCLOVIR HYDROCHLORIDE [Concomitant]
     Active Substance: VALACYCLOVIR HYDROCHLORIDE
     Dosage: UNK UNK, QD
     Route: 065
     Dates: start: 20200529, end: 20211021
  40. VALACYCLOVIR HYDROCHLORIDE [Concomitant]
     Active Substance: VALACYCLOVIR HYDROCHLORIDE
     Dosage: UNK UNK, QD
     Dates: start: 20200529, end: 20211021
  41. TRAMADOL [Concomitant]
     Active Substance: TRAMADOL
     Indication: Bone pain
     Dates: start: 20210819, end: 20210910
  42. TRAMADOL [Concomitant]
     Active Substance: TRAMADOL
     Dates: start: 20210819, end: 20210910
  43. TRAMADOL [Concomitant]
     Active Substance: TRAMADOL
     Route: 065
     Dates: start: 20210819, end: 20210910
  44. TRAMADOL [Concomitant]
     Active Substance: TRAMADOL
     Route: 065
     Dates: start: 20210819, end: 20210910
  45. TRAMADOL [Concomitant]
     Active Substance: TRAMADOL
  46. TRAMADOL [Concomitant]
     Active Substance: TRAMADOL
  47. TRAMADOL [Concomitant]
     Active Substance: TRAMADOL
     Route: 065
  48. TRAMADOL [Concomitant]
     Active Substance: TRAMADOL
     Route: 065
  49. DEXCHLORPHENIRAMINE [Concomitant]
     Active Substance: DEXCHLORPHENIRAMINE
     Indication: Prophylaxis
     Dates: start: 20210906, end: 20211018
  50. DEXCHLORPHENIRAMINE [Concomitant]
     Active Substance: DEXCHLORPHENIRAMINE
     Route: 065
     Dates: start: 20210906, end: 20211018
  51. DEXCHLORPHENIRAMINE [Concomitant]
     Active Substance: DEXCHLORPHENIRAMINE
     Route: 065
     Dates: start: 20210906, end: 20211018
  52. DEXCHLORPHENIRAMINE [Concomitant]
     Active Substance: DEXCHLORPHENIRAMINE
     Dates: start: 20210906, end: 20211018
  53. PREDNISOLONE [Concomitant]
     Active Substance: PREDNISOLONE
     Indication: Bone pain
  54. PREDNISOLONE [Concomitant]
     Active Substance: PREDNISOLONE
     Route: 065
  55. PREDNISOLONE [Concomitant]
     Active Substance: PREDNISOLONE
     Route: 065
  56. PREDNISOLONE [Concomitant]
     Active Substance: PREDNISOLONE
  57. APIXABAN [Concomitant]
     Active Substance: APIXABAN
     Indication: Arrhythmia
     Dates: start: 20210908, end: 20210915
  58. APIXABAN [Concomitant]
     Active Substance: APIXABAN
     Route: 065
     Dates: start: 20210908, end: 20210915
  59. APIXABAN [Concomitant]
     Active Substance: APIXABAN
     Route: 065
     Dates: start: 20210908, end: 20210915
  60. APIXABAN [Concomitant]
     Active Substance: APIXABAN
     Dates: start: 20210908, end: 20210915
  61. PANTOPRAZOLE [Concomitant]
     Active Substance: PANTOPRAZOLE
     Indication: Prophylaxis
     Dates: start: 20210906, end: 20211018
  62. PANTOPRAZOLE [Concomitant]
     Active Substance: PANTOPRAZOLE
     Route: 065
     Dates: start: 20210906, end: 20211018
  63. PANTOPRAZOLE [Concomitant]
     Active Substance: PANTOPRAZOLE
     Route: 065
     Dates: start: 20210906, end: 20211018
  64. PANTOPRAZOLE [Concomitant]
     Active Substance: PANTOPRAZOLE
     Dates: start: 20210906, end: 20211018
  65. Comirnaty [Concomitant]
     Indication: Immunisation
     Dates: start: 20210901, end: 20210901
  66. Comirnaty [Concomitant]
     Route: 065
     Dates: start: 20210901, end: 20210901
  67. Comirnaty [Concomitant]
     Route: 065
     Dates: start: 20210901, end: 20210901
  68. Comirnaty [Concomitant]
     Dates: start: 20210901, end: 20210901
  69. PRIVIGEN [Concomitant]
     Active Substance: HUMAN IMMUNOGLOBULIN G
     Indication: Pulmonary sepsis
     Dates: start: 20210906, end: 20211005
  70. PRIVIGEN [Concomitant]
     Active Substance: HUMAN IMMUNOGLOBULIN G
     Indication: Sepsis
     Route: 065
     Dates: start: 20210906, end: 20211005
  71. PRIVIGEN [Concomitant]
     Active Substance: HUMAN IMMUNOGLOBULIN G
     Indication: Neutropenia
     Route: 065
     Dates: start: 20210906, end: 20211005
  72. PRIVIGEN [Concomitant]
     Active Substance: HUMAN IMMUNOGLOBULIN G
     Indication: Infection prophylaxis
     Dates: start: 20210906, end: 20211005
  73. ACETAMINOPHEN [Concomitant]
     Active Substance: ACETAMINOPHEN
     Indication: Bone pain
     Dates: start: 20210601, end: 20210911
  74. ACETAMINOPHEN [Concomitant]
     Active Substance: ACETAMINOPHEN
     Dates: start: 20210601, end: 20210911
  75. ACETAMINOPHEN [Concomitant]
     Active Substance: ACETAMINOPHEN
     Route: 065
     Dates: start: 20210601, end: 20210911
  76. ACETAMINOPHEN [Concomitant]
     Active Substance: ACETAMINOPHEN
     Route: 065
     Dates: start: 20210601, end: 20210911
  77. ACETAMINOPHEN [Concomitant]
     Active Substance: ACETAMINOPHEN
  78. ACETAMINOPHEN [Concomitant]
     Active Substance: ACETAMINOPHEN
  79. ACETAMINOPHEN [Concomitant]
     Active Substance: ACETAMINOPHEN
     Route: 065
  80. ACETAMINOPHEN [Concomitant]
     Active Substance: ACETAMINOPHEN
     Route: 065
  81. ZOLEDRONIC ACID [Concomitant]
     Active Substance: ZOLEDRONIC ACID
     Indication: Bone pain
     Dates: start: 20211005, end: 20211005
  82. ZOLEDRONIC ACID [Concomitant]
     Active Substance: ZOLEDRONIC ACID
     Route: 065
     Dates: start: 20211005, end: 20211005
  83. ZOLEDRONIC ACID [Concomitant]
     Active Substance: ZOLEDRONIC ACID
     Route: 065
     Dates: start: 20211005, end: 20211005
  84. ZOLEDRONIC ACID [Concomitant]
     Active Substance: ZOLEDRONIC ACID
     Dates: start: 20211005, end: 20211005
  85. CEFTAZIDIME [Concomitant]
     Active Substance: CEFTAZIDIME
     Indication: Sepsis
     Dates: start: 20210827, end: 20210902
  86. CEFTAZIDIME [Concomitant]
     Active Substance: CEFTAZIDIME
     Indication: Pseudomonas infection
     Route: 065
     Dates: start: 20210827, end: 20210902
  87. CEFTAZIDIME [Concomitant]
     Active Substance: CEFTAZIDIME
     Route: 065
     Dates: start: 20210827, end: 20210902
  88. CEFTAZIDIME [Concomitant]
     Active Substance: CEFTAZIDIME
     Dates: start: 20210827, end: 20210902
  89. FENTANYL [Concomitant]
     Active Substance: FENTANYL
  90. FENTANYL [Concomitant]
     Active Substance: FENTANYL
     Route: 065
  91. FENTANYL [Concomitant]
     Active Substance: FENTANYL
     Route: 065
  92. FENTANYL [Concomitant]
     Active Substance: FENTANYL
  93. NEFOPAM [Concomitant]
     Active Substance: NEFOPAM
     Dates: start: 20210922, end: 20211004
  94. NEFOPAM [Concomitant]
     Active Substance: NEFOPAM
     Route: 065
     Dates: start: 20210922, end: 20211004
  95. NEFOPAM [Concomitant]
     Active Substance: NEFOPAM
     Route: 065
     Dates: start: 20210922, end: 20211004
  96. NEFOPAM [Concomitant]
     Active Substance: NEFOPAM
     Dates: start: 20210922, end: 20211004
  97. MORPHINE [Concomitant]
     Active Substance: MORPHINE
  98. MORPHINE [Concomitant]
     Active Substance: MORPHINE
     Route: 065
  99. MORPHINE [Concomitant]
     Active Substance: MORPHINE
     Route: 065
  100. MORPHINE [Concomitant]
     Active Substance: MORPHINE

REACTIONS (11)
  - Sepsis [Not Recovered/Not Resolved]
  - Febrile neutropenia [Recovered/Resolved]
  - Urinary retention [Recovered/Resolved]
  - Neutrophil count decreased [Recovered/Resolved]
  - Confusional state [Recovered/Resolved]
  - Bone pain [Not Recovered/Not Resolved]
  - Epistaxis [Recovered/Resolved]
  - Skin lesion [Unknown]
  - Platelet count decreased [Recovered/Resolved]
  - Anaemia [Not Recovered/Not Resolved]
  - Asthenia [Not Recovered/Not Resolved]

NARRATIVE: CASE EVENT DATE: 20210910
